FAERS Safety Report 16713178 (Version 1)
Quarter: 2019Q3

REPORT INFORMATION
  Report Type: Other
  Country: CN (occurrence: CN)
  Receive Date: 20190817
  Receipt Date: 20190817
  Transmission Date: 20191004
  Serious: Yes (Hospitalization)
  Sender: FDA-Public Use
  Company Number: CN-JIANGSU HENGRUI MEDICINE CO., LTD.-2073282

PATIENT
  Age: 28 Year
  Sex: Male
  Weight: 70 kg

DRUGS (6)
  1. HEMOCOAGULASE FROM AGKISTRODON SPEARHEAD FOR INJECTION [Concomitant]
     Route: 040
     Dates: start: 20190802, end: 20190802
  2. CISATRACURIUM BESYLATE INJECTION USP, 10 MG/5 ML (2 MG/ML) AND 200 MG/ [Suspect]
     Active Substance: CISATRACURIUM BESYLATE
     Indication: SEDATION
     Route: 040
     Dates: start: 20190802, end: 20190802
  3. PROPOFOL. [Concomitant]
     Active Substance: PROPOFOL
     Route: 040
     Dates: start: 20190802, end: 20190802
  4. SODIUM POTASSIUM MAGNESIUM CALCIUM AND GLUCOSE INJECTION [Suspect]
     Active Substance: CALCIUM GLUCONATE\DEXTROSE\MAGNESIUM CHLORIDE\POTASSIUM CHLORIDE\SODIUM ACETATE\SODIUM CHLORIDE\TRISODIUM CITRATE DIHYDRATE
     Route: 041
     Dates: start: 20190802, end: 20190802
  5. MANNITOL. [Suspect]
     Active Substance: MANNITOL
     Route: 041
     Dates: start: 20190802, end: 20190802
  6. CEFAZOLIN SODIUM PENTAHYDRATE FOR INJECTION [Concomitant]
     Active Substance: CEFAZOLIN SODIUM PENTAHYDRATE
     Route: 041
     Dates: start: 20190802, end: 20190802

REACTIONS (1)
  - Anaphylactic shock [Unknown]

NARRATIVE: CASE EVENT DATE: 20190802
